FAERS Safety Report 6062776-X (Version None)
Quarter: 2009Q1

REPORT INFORMATION
  Report Type: 
  Country: None (occurrence: None)
  Receive Date: 20090203
  Receipt Date: 20090126
  Transmission Date: 20090719
  Serious: No
  Sender: FDA-Public Use
  Company Number: US-JNJFOC-20090106555

PATIENT
  Sex: Male
  Weight: 85.28 kg

DRUGS (8)
  1. FENTANYL TRANSDERMAL SYSTEM [Suspect]
     Indication: PSORIATIC ARTHROPATHY
     Route: 062
  2. REGULAR INSULIN [Concomitant]
     Indication: DIABETES MELLITUS
     Dosage: 15 UNITS
     Route: 058
  3. SYNTHROID [Concomitant]
     Indication: HYPOTHYROIDISM
     Route: 048
  4. ZOCOR [Concomitant]
     Indication: BLOOD CHOLESTEROL INCREASED
     Route: 048
  5. ZETIA [Concomitant]
     Indication: BLOOD CHOLESTEROL INCREASED
     Route: 048
  6. LISINOPRIL [Concomitant]
     Indication: DIABETES MELLITUS
     Route: 048
  7. INSULATARD NPH HUMAN [Concomitant]
     Indication: DIABETES MELLITUS
     Dosage: 10 UNITS
     Route: 058
  8. NEURONTIN [Concomitant]
     Indication: PSORIASIS
     Route: 048

REACTIONS (3)
  - DRUG EFFECT INCREASED [None]
  - INAPPROPRIATE SCHEDULE OF DRUG ADMINISTRATION [None]
  - PRODUCT QUALITY ISSUE [None]
